FAERS Safety Report 5622245-5 (Version None)
Quarter: 2008Q1

REPORT INFORMATION
  Report Type: 
  Country: None (occurrence: None)
  Receive Date: 20080211
  Receipt Date: 20080129
  Transmission Date: 20080703
  Serious: Yes (Death, Hospitalization)
  Sender: FDA-Public Use
  Company Number: FR-ROCHE-544798

PATIENT
  Age: 49 Year
  Sex: Male

DRUGS (10)
  1. ROCEPHIN [Suspect]
     Indication: DRUG USE FOR UNKNOWN INDICATION
     Route: 065
     Dates: start: 20071129, end: 20071210
  2. CIFLOX [Suspect]
     Indication: DRUG USE FOR UNKNOWN INDICATION
     Dosage: FORM: INJECTABE SOLUTION.
     Route: 042
     Dates: start: 20071126, end: 20071210
  3. THIOPENTAL SODIUM [Suspect]
     Indication: DRUG USE FOR UNKNOWN INDICATION
     Dosage: FORM: INJECTABLE SOLUTION.
     Route: 042
     Dates: start: 20071123, end: 20071207
  4. NEXIUM [Suspect]
     Indication: DRUG USE FOR UNKNOWN INDICATION
     Dosage: FORM: INJECTABLE SOLUTION.
     Route: 042
     Dates: start: 20071122, end: 20071209
  5. KETAMINE HCL [Concomitant]
     Dates: start: 20071123, end: 20071205
  6. FENTANYL [Concomitant]
     Dates: start: 20071122, end: 20071207
  7. NORADRENALINE [Concomitant]
     Dates: start: 20071122, end: 20071208
  8. CERNEVIT-12 [Concomitant]
     Dates: end: 20071209
  9. NONAN [Concomitant]
     Dates: end: 20071209
  10. VITAMIN B1 [Concomitant]
     Dosage: DRUG: VITAMIN B1/B6

REACTIONS (2)
  - LEUKOPENIA [None]
  - NEUTROPENIA [None]
